FAERS Safety Report 4939833-1 (Version None)
Quarter: 2006Q1

REPORT INFORMATION
  Report Type: 
  Country: None (occurrence: None)
  Receive Date: 20060307
  Receipt Date: 20060223
  Transmission Date: 20060701
  Serious: Yes (Other)
  Sender: FDA-Public Use
  Company Number: 2005BI021566

PATIENT
  Age: 31 Year
  Sex: Female

DRUGS (3)
  1. AVONEX [Suspect]
     Indication: MULTIPLE SCLEROSIS
     Dosage: 15 UG;QW;IM
     Route: 030
     Dates: start: 20050818, end: 20051013
  2. CLONOPIN [Concomitant]
  3. BACLOFEN [Concomitant]

REACTIONS (4)
  - CONVULSION [None]
  - DEPRESSION [None]
  - DRUG SCREEN POSITIVE [None]
  - FALL [None]
